FAERS Safety Report 8970926 (Version 1)
Quarter: 2012Q4

REPORT INFORMATION
  Report Type: 
  Country: JP (occurrence: JP)
  Receive Date: 20121218
  Receipt Date: 20121218
  Transmission Date: 20130627
  Serious: Yes (Hospitalization, Other)
  Sender: FDA-Public Use
  Company Number: JP-ROCHE-1098897

PATIENT
  Age: 28 Year
  Sex: Female
  Weight: 50 kg

DRUGS (9)
  1. DORMICUM (UNSPEC) [Suspect]
     Indication: SEDATIVE THERAPY
     Dosage: 13:05
     Route: 042
     Dates: start: 20091116, end: 20091116
  2. DORMICUM (UNSPEC) [Suspect]
     Dosage: 14:45
     Route: 042
     Dates: start: 20091116, end: 20091116
  3. FLUMAZENIL [Suspect]
     Indication: DELAYED RECOVERY FROM ANAESTHESIA
     Dosage: at 14:25, daily
     Route: 065
     Dates: start: 20091116
  4. LIDOCAINE [Suspect]
     Indication: PAIN PROPHYLAXIS
     Route: 042
     Dates: start: 20091116, end: 20091116
  5. PROPOFOL [Suspect]
     Indication: SEDATIVE THERAPY
     Dosage: Regimen: 1, at 13:07
     Route: 042
     Dates: start: 20091116, end: 20091116
  6. PROPOFOL [Suspect]
     Dosage: Regimen:2, at 13:30 to 14:00 30 min
     Route: 042
     Dates: start: 20091116, end: 20091116
  7. EPINEPHRINE\LIDOCAINE HYDROCHLORIDE [Suspect]
     Indication: LOCAL ANAESTHESIA
     Route: 061
     Dates: start: 20091116, end: 20091116
  8. XYLOCAINE WITH EPINEPHRINE [Suspect]
     Indication: LOCAL ANAESTHESIA
     Dosage: 13:20
     Route: 061
     Dates: start: 20091116, end: 20091116
  9. DEPAS [Concomitant]
     Route: 048

REACTIONS (4)
  - Delayed recovery from anaesthesia [Recovered/Resolved]
  - Depressed level of consciousness [Recovered/Resolved]
  - Convulsion [Recovered/Resolved]
  - Nightmare [None]
